FAERS Safety Report 9565811 (Version 1)
Quarter: 2013Q3

REPORT INFORMATION
  Report Type: Report from Study
  Country: AU (occurrence: AU)
  Receive Date: 20130930
  Receipt Date: 20130930
  Transmission Date: 20140515
  Serious: Yes (Other)
  Sender: FDA-Public Use
  Company Number: AU-GLAXOSMITHKLINE-Z0017949D

PATIENT
  Age: 76 Year
  Sex: Male
  Weight: 102.7 kg

DRUGS (3)
  1. TRAMETINIB [Suspect]
     Indication: MALIGNANT MELANOMA
     Dosage: 2MG PER DAY
     Route: 048
     Dates: start: 20120816
  2. DABRAFENIB [Suspect]
     Indication: MALIGNANT MELANOMA
     Dosage: 150MG TWICE PER DAY
     Route: 048
     Dates: start: 20120816
  3. XYLOCAINE + ADRENALINE [Concomitant]
     Indication: LOCAL ANAESTHESIA
     Route: 030
     Dates: start: 20130228, end: 20130228

REACTIONS (1)
  - Basal cell carcinoma [Recovering/Resolving]
